FAERS Safety Report 8213254-0 (Version None)
Quarter: 2012Q1

REPORT INFORMATION
  Report Type: 
  Country: None (occurrence: None)
  Receive Date: 20120315
  Receipt Date: 20120314
  Transmission Date: 20120608
  Serious: Yes (Disabling)
  Sender: FDA-Public Use
  Company Number: DE-ABBOTT-12P-062-0915201-00

PATIENT
  Sex: Male
  Weight: 100 kg

DRUGS (4)
  1. FUMADERM [Concomitant]
     Indication: PSORIASIS
     Route: 048
     Dates: start: 20110811
  2. HUMIRA [Suspect]
     Indication: PSORIATIC ARTHROPATHY
     Route: 058
     Dates: start: 20090713
  3. VITAMINE B12 [Concomitant]
     Indication: PRODUCT USED FOR UNKNOWN INDICATION
     Dosage: 1000MCG DAILY DOSE
     Route: 031
     Dates: start: 20090713
  4. ASPIRIN [Concomitant]
     Indication: PRODUCT USED FOR UNKNOWN INDICATION
     Dosage: 100MG DAILY DOSE
     Route: 048
     Dates: start: 20061031

REACTIONS (1)
  - DIABETES MELLITUS [None]
